FAERS Safety Report 7083476-3 (Version None)
Quarter: 2010Q4

REPORT INFORMATION
  Report Type: 
  Country: None (occurrence: None)
  Receive Date: 20101027
  Receipt Date: 20101022
  Transmission Date: 20110411
  Serious: Yes (Other)
  Sender: FDA-Public Use
  Company Number: DE-1183666

PATIENT
  Sex: Female

DRUGS (1)
  1. MAXITROL [Suspect]
     Dosage: TID OPHTHALMIC
     Route: 047
     Dates: start: 20100521

REACTIONS (3)
  - DIPLOPIA [None]
  - INFLAMMATION [None]
  - LOSS OF CONSCIOUSNESS [None]
